FAERS Safety Report 8422145-1 (Version None)
Quarter: 2012Q2

REPORT INFORMATION
  Report Type: 
  Country: None (occurrence: None)
  Receive Date: 20120608
  Receipt Date: 20120605
  Transmission Date: 20120825
  Serious: Yes (Other)
  Sender: FDA-Public Use
  Company Number: PHHY2012BR048939

PATIENT
  Sex: Female

DRUGS (3)
  1. DIOVAN [Suspect]
     Dosage: UNK UKN, UNK
  2. DIURETICS [Suspect]
     Dosage: UNK UKN, UNK
  3. METFORMIN HCL [Suspect]
     Dosage: 1000/50MG, UNK

REACTIONS (4)
  - WEIGHT DECREASED [None]
  - BREAST CANCER [None]
  - POLLAKIURIA [None]
  - TREMOR [None]
